FAERS Safety Report 9750630 (Version 1)
Quarter: 2013Q4

REPORT INFORMATION
  Report Type: Spontaneous
  Country: US (occurrence: US)
  Receive Date: 20131212
  Receipt Date: 20131212
  Transmission Date: 20140711
  Serious: No
  Sender: FDA-Public Use
  Company Number: US-BIOGENIDEC-2013BI101516

PATIENT
  Age: 41 Year
  Sex: Female

DRUGS (1)
  1. TECFIDERA [Suspect]
     Indication: MULTIPLE SCLEROSIS
     Dates: start: 2013, end: 20130813

REACTIONS (5)
  - Diarrhoea [Unknown]
  - Nausea [Unknown]
  - Flushing [Unknown]
  - Pruritus [Unknown]
  - White blood cell count decreased [Recovered/Resolved]
